FAERS Safety Report 6443811-3 (Version None)
Quarter: 2009Q4

REPORT INFORMATION
  Report Type: 
  Country: None (occurrence: None)
  Receive Date: 20091117
  Receipt Date: 20091104
  Transmission Date: 20100525
  Serious: Yes (Other)
  Sender: FDA-Public Use
  Company Number: PHHY2009US48896

PATIENT
  Age: 16 Year
  Sex: Male

DRUGS (1)
  1. OXCARBAZEPINE [Suspect]

REACTIONS (5)
  - ABNORMAL BEHAVIOUR [None]
  - CONDITION AGGRAVATED [None]
  - STRESS [None]
  - TENSION [None]
  - TIC [None]
